FAERS Safety Report 7182799-7 (Version None)
Quarter: 2010Q4

REPORT INFORMATION
  Report Type: 
  Country: None (occurrence: None)
  Receive Date: 20101221
  Receipt Date: 20101213
  Transmission Date: 20110411
  Serious: Yes (Other)
  Sender: FDA-Public Use
  Company Number: BR-AMGEN-BRASP2010009748

PATIENT

DRUGS (7)
  1. ENBREL [Suspect]
     Indication: RHEUMATOID ARTHRITIS
     Dosage: 25 MG, 2X/WEEK
     Route: 058
     Dates: start: 20100701
  2. MESTINON [Concomitant]
     Indication: MYASTHENIA GRAVIS
  3. CHONDROITIN/GLUCOSAMINE [Concomitant]
     Indication: ARTHRITIS
  4. SEROQUEL [Concomitant]
     Indication: DEPRESSION
     Dosage: UNK
     Dates: start: 20101101
  5. TEGRETOL [Concomitant]
     Indication: DEPRESSION
     Dosage: UNK
     Dates: start: 20101101
  6. CITALOPRAM [Concomitant]
     Indication: DEPRESSION
     Dosage: UNK
     Dates: start: 20090101
  7. OMEPRAZOLE [Concomitant]
     Indication: GASTRIC DISORDER

REACTIONS (1)
  - RHEUMATOID ARTHRITIS [None]
